FAERS Safety Report 6442722-7 (Version None)
Quarter: 2009Q4

REPORT INFORMATION
  Report Type: 
  Country: None (occurrence: None)
  Receive Date: 20091117
  Receipt Date: 20091112
  Transmission Date: 20100525
  Serious: Yes (Hospitalization)
  Sender: FDA-Public Use
  Company Number: FR-ROCHE-668674

PATIENT
  Sex: Female

DRUGS (7)
  1. ROCEPHIN [Suspect]
     Dosage: DOSE: 17 ML/MIN
     Route: 042
     Dates: start: 20090119, end: 20090121
  2. AUGMENTIN [Suspect]
     Route: 042
     Dates: start: 20090119, end: 20090119
  3. LASILIX [Suspect]
     Route: 048
     Dates: start: 20090119, end: 20090121
  4. TRILEPTAL [Concomitant]
     Dosage: DRUG: TRILEPTAL 300
     Route: 048
  5. RISPERDAL [Concomitant]
     Dosage: LONG TERM TREATMENT
     Route: 048
  6. KARDEGIC [Concomitant]
     Dosage: LONG TERM TREATMENT
     Route: 048
  7. SPECIAFOLDINE [Concomitant]
     Route: 048

REACTIONS (1)
  - RENAL FAILURE CHRONIC [None]
